FAERS Safety Report 6563893-8 (Version None)
Quarter: 2010Q1

REPORT INFORMATION
  Report Type: 
  Country: None (occurrence: None)
  Receive Date: 20100131
  Receipt Date: 20091229
  Transmission Date: 20100710
  Serious: No
  Sender: FDA-Public Use
  Company Number: US-ABBOTT-10P-163-0617313-00

PATIENT
  Sex: Female
  Weight: 49.486 kg

DRUGS (3)
  1. HUMIRA [Suspect]
     Indication: CROHN'S DISEASE
     Dates: start: 20091223
  2. ENZYME SUPPLEMENTS [Concomitant]
     Indication: ENZYME SUPPLEMENTATION
  3. ENZYME SUPPLEMENTS [Concomitant]
     Indication: DYSPEPSIA

REACTIONS (2)
  - ABDOMINAL PAIN [None]
  - FLATULENCE [None]
